FAERS Safety Report 6462419-7 (Version None)
Quarter: 2009Q4

REPORT INFORMATION
  Report Type: 
  Country: None (occurrence: None)
  Receive Date: 20091130
  Receipt Date: 20091117
  Transmission Date: 20100525
  Serious: Yes (Hospitalization, Other)
  Sender: FDA-Public Use
  Company Number: AR-PFIZER INC-2009298830

PATIENT
  Age: 64 Year
  Sex: Female

DRUGS (4)
  1. SUTENT [Suspect]
     Indication: RENAL CANCER
     Dosage: 50 MG, 1X/DAY, EVERY DAY
     Route: 048
  2. LOSARTAN [Concomitant]
     Dosage: UNK
  3. MORPHINE [Concomitant]
     Dosage: UNK
  4. T4 [Concomitant]
     Dosage: UNK

REACTIONS (6)
  - ANAPHYLACTIC REACTION [None]
  - ELECTROCARDIOGRAM T WAVE ABNORMAL [None]
  - HYPERTENSION [None]
  - HYPONATRAEMIA [None]
  - LARYNGEAL OEDEMA [None]
  - SYNCOPE [None]
